FAERS Safety Report 20693564 (Version 1)
Quarter: 2022Q2

REPORT INFORMATION
  Report Type: Report from Study
  Country: BR (occurrence: BR)
  Receive Date: 20220411
  Receipt Date: 20220411
  Transmission Date: 20220721
  Serious: Yes (Other)
  Sender: FDA-Public Use
  Company Number: BR-TAKEDA-2020TUS045103

PATIENT
  Age: 16 Year
  Sex: Male
  Weight: 45 kg

DRUGS (10)
  1. IDURSULFASE [Suspect]
     Active Substance: IDURSULFASE
     Indication: Mucopolysaccharidosis II
     Dosage: 3 DOSAGE FORM
     Route: 065
  2. IDURSULFASE [Suspect]
     Active Substance: IDURSULFASE
     Dosage: 4 DOSAGE FORM
     Route: 042
  3. IDURSULFASE [Suspect]
     Active Substance: IDURSULFASE
     Dosage: 4 DOSAGE FORM, 1/WEEK
     Route: 042
     Dates: start: 2010
  4. CARBAMAZEPINE [Concomitant]
     Active Substance: CARBAMAZEPINE
  5. GABAPENTIN [Concomitant]
     Active Substance: GABAPENTIN
  6. RISPERIDONE [Concomitant]
     Active Substance: RISPERIDONE
  7. AZITHROMYCIN [Concomitant]
     Active Substance: AZITHROMYCIN
  8. CYCLOBENZAPRINE [Concomitant]
     Active Substance: CYCLOBENZAPRINE
  9. CARVEDILOL [Concomitant]
     Active Substance: CARVEDILOL
  10. MELATONIN [Concomitant]
     Active Substance: MELATONIN

REACTIONS (4)
  - COVID-19 [Recovered/Resolved]
  - Off label use [Unknown]
  - Dose calculation error [Unknown]
  - Inappropriate schedule of product administration [Unknown]

NARRATIVE: CASE EVENT DATE: 20220301
